FAERS Safety Report 10143220 (Version 1)
Quarter: 2014Q2

REPORT INFORMATION
  Report Type: Spontaneous
  Country: US (occurrence: None)
  Receive Date: 20140429
  Receipt Date: 20140429
  Transmission Date: 20141212
  Serious: No
  Sender: FDA-Public Use
  Company Number: None

PATIENT
  Age: 73 Year
  Sex: Male

DRUGS (8)
  1. IMBRUVICA [Suspect]
     Indication: CHRONIC LYMPHOCYTIC LEUKAEMIA
     Route: 048
     Dates: start: 20140205
  2. METFORMIN [Concomitant]
  3. FINASTERIDE [Concomitant]
  4. PAROXETINE [Concomitant]
  5. METOPROLOL [Concomitant]
  6. DOXAZOSIN [Concomitant]
  7. PRAVASTATIN [Concomitant]
  8. FLECAINIDE [Concomitant]

REACTIONS (2)
  - Diarrhoea [None]
  - Atrial fibrillation [None]
